FAERS Safety Report 18611429 (Version 1)
Quarter: 2020Q4

REPORT INFORMATION
  Report Type: Spontaneous
  Country: US (occurrence: US)
  Receive Date: 20201214
  Receipt Date: 20201214
  Transmission Date: 20210114
  Serious: Yes (Other)
  Sender: FDA-Public Use
  Company Number: US-MAYNE PHARMA-2020MYN000589

PATIENT

DRUGS (1)
  1. TOLSURA [Suspect]
     Active Substance: ITRACONAZOLE
     Indication: HISTOPLASMOSIS DISSEMINATED
     Dosage: 200 MG, 2 PER 1 DAY

REACTIONS (2)
  - Hypertension [Recovering/Resolving]
  - Pericardial effusion [Recovering/Resolving]
